FAERS Safety Report 7044374-4 (Version None)
Quarter: 2010Q4

REPORT INFORMATION
  Report Type: 
  Country: None (occurrence: None)
  Receive Date: 20101014
  Receipt Date: 20100923
  Transmission Date: 20110411
  Serious: Yes (Hospitalization, Other)
  Sender: FDA-Public Use
  Company Number: US-BAYER-200937150NA

PATIENT
  Age: 19 Year
  Sex: Female
  Weight: 64 kg

DRUGS (4)
  1. YAZ [Suspect]
     Indication: PRODUCT USED FOR UNKNOWN INDICATION
  2. YASMIN [Suspect]
     Indication: DYSMENORRHOEA
     Route: 048
     Dates: start: 20040101, end: 20090101
  3. OCELLA [Suspect]
     Indication: DYSMENORRHOEA
     Route: 048
     Dates: start: 20040101, end: 20090101
  4. OVCON-35 [Concomitant]
     Dates: start: 20060815

REACTIONS (4)
  - ABDOMINAL PAIN [None]
  - BILIARY DYSKINESIA [None]
  - CHOLECYSTITIS [None]
  - FLANK PAIN [None]
